FAERS Safety Report 6736739-2 (Version None)
Quarter: 2010Q2

REPORT INFORMATION
  Report Type: 
  Country: None (occurrence: None)
  Receive Date: 20100521
  Receipt Date: 20100514
  Transmission Date: 20101027
  Serious: Yes (Hospitalization)
  Sender: FDA-Public Use
  Company Number: PHHO2010HU07277

PATIENT
  Sex: Female
  Weight: 73.9 kg

DRUGS (2)
  1. AFINITOR [Suspect]
     Indication: METASTATIC RENAL CELL CARCINOMA
     Dosage: 10 MG, DAILY
     Route: 048
     Dates: start: 20100106, end: 20100511
  2. MEFORAL [Concomitant]
     Indication: DIABETES MELLITUS

REACTIONS (3)
  - HYPERGLYCAEMIA [None]
  - OEDEMA PERIPHERAL [None]
  - THROMBOSIS [None]
